FAERS Safety Report 22995416 (Version 2)
Quarter: 2024Q2

REPORT INFORMATION
  Report Type: Spontaneous
  Country: JP (occurrence: JP)
  Receive Date: 20230927
  Receipt Date: 20240430
  Transmission Date: 20240715
  Serious: Yes (Other)
  Sender: FDA-Public Use
  Company Number: JP-Merck Healthcare KGaA-2023475317

PATIENT
  Age: 60 Year
  Sex: Male

DRUGS (4)
  1. ERBITUX [Suspect]
     Active Substance: CETUXIMAB
     Indication: Rectal cancer stage IV
     Route: 041
  2. IRINOTECAN HYDROCHLORIDE [Concomitant]
     Active Substance: IRINOTECAN HYDROCHLORIDE
     Indication: Rectal cancer stage IV
     Route: 065
  3. LEVOLEUCOVORIN CALCIUM [Concomitant]
     Active Substance: LEVOLEUCOVORIN CALCIUM
     Indication: Rectal cancer stage IV
  4. FLUOROURACIL [Concomitant]
     Active Substance: FLUOROURACIL
     Indication: Rectal cancer stage IV

REACTIONS (4)
  - Enterocolitis [Recovered/Resolved]
  - Thrombosis [Unknown]
  - Rash [Unknown]
  - Dermatitis acneiform [Unknown]

NARRATIVE: CASE EVENT DATE: 20230901
